FAERS Safety Report 8044071-2 (Version None)
Quarter: 2012Q1

REPORT INFORMATION
  Report Type: 
  Country: None (occurrence: None)
  Receive Date: 20120113
  Receipt Date: 20120109
  Transmission Date: 20120608
  Serious: Yes (Other)
  Sender: FDA-Public Use
  Company Number: US-BAYER-2011-020509

PATIENT
  Sex: Male

DRUGS (2)
  1. NEXAVAR [Suspect]
     Indication: THYROID CANCER
     Dosage: 400 MG, BID (SHIPMENT DATE 24-JAN-2011)
     Route: 048
     Dates: start: 20110124
  2. NEXAVAR [Suspect]
     Dosage: 200 MG, BID (SHIPMENT DATE 12-DEC-2011)
     Route: 048
     Dates: start: 20110124

REACTIONS (5)
  - PALMAR-PLANTAR ERYTHRODYSAESTHESIA SYNDROME [None]
  - PAIN IN EXTREMITY [None]
  - DIARRHOEA [None]
  - ABASIA [None]
  - CHANGE OF BOWEL HABIT [None]
